FAERS Safety Report 9197850 (Version 4)
Quarter: 2013Q2

REPORT INFORMATION
  Report Type: Report from Study
  Country: CA (occurrence: CA)
  Receive Date: 20130328
  Receipt Date: 20130422
  Transmission Date: 20140414
  Serious: Yes (Hospitalization, Other)
  Sender: FDA-Public Use
  Company Number: CA-ABBOTT-13P-028-1066299-00

PATIENT
  Age: 68 Year
  Sex: Female
  Weight: 70.37 kg

DRUGS (4)
  1. HUMIRA [Suspect]
     Indication: RHEUMATOID ARTHRITIS
     Route: 058
     Dates: start: 19991223, end: 20130309
  2. METHOTREXATE [Concomitant]
     Indication: RHEUMATOID ARTHRITIS
     Route: 048
     Dates: start: 2012
  3. FOLIC ACID [Concomitant]
     Indication: VITAMIN SUPPLEMENTATION
     Route: 048
     Dates: start: 2012
  4. TYLENOL [Concomitant]
     Indication: PAIN
     Route: 048
     Dates: start: 201303

REACTIONS (3)
  - Aneurysm [Recovering/Resolving]
  - Haemorrhage [Recovering/Resolving]
  - Dyspnoea [Not Recovered/Not Resolved]
